FAERS Safety Report 9670067 (Version 2)
Quarter: 2013Q4

REPORT INFORMATION
  Report Type: Spontaneous
  Country: US (occurrence: US)
  Receive Date: 20131105
  Receipt Date: 20131113
  Transmission Date: 20140711
  Serious: Yes (Other)
  Sender: FDA-Public Use
  Company Number: US-BAXTER-2013BAX041995

PATIENT
  Sex: Male

DRUGS (13)
  1. GAMMAGARD LIQUID [Suspect]
     Indication: IMMUNE THROMBOCYTOPENIC PURPURA
     Dosage: A FEW TIMES A YEAR
     Route: 065
     Dates: start: 2009, end: 2010
  2. GAMMAGARD LIQUID [Suspect]
     Route: 065
     Dates: start: 2010, end: 2010
  3. GAMMAGARD LIQUID [Suspect]
     Route: 065
     Dates: start: 2011, end: 2011
  4. GAMMAGARD LIQUID [Suspect]
     Route: 065
     Dates: start: 2012, end: 2012
  5. GAMMAGARD LIQUID [Suspect]
     Route: 042
     Dates: start: 201301
  6. GAMMAGARD LIQUID [Suspect]
     Dates: start: 20130925
  7. GAMMAGARD LIQUID [Suspect]
     Dates: start: 20131024
  8. GAMMAGARD LIQUID [Suspect]
     Route: 042
  9. POTASSIUM CHLORIDE [Concomitant]
     Indication: PRODUCT USED FOR UNKNOWN INDICATION
     Route: 048
  10. MULTI-VITAMIN [Concomitant]
     Indication: PRODUCT USED FOR UNKNOWN INDICATION
     Route: 048
  11. PROBIOTICS SUPPLEMENT [Concomitant]
     Indication: PRODUCT USED FOR UNKNOWN INDICATION
     Route: 048
  12. SELENIUM SUPPLEMENT [Concomitant]
     Indication: PRODUCT USED FOR UNKNOWN INDICATION
     Route: 048
  13. FINASTERIDE [Concomitant]
     Indication: PRODUCT USED FOR UNKNOWN INDICATION
     Route: 048

REACTIONS (4)
  - Platelet count decreased [Not Recovered/Not Resolved]
  - Petechiae [Recovering/Resolving]
  - Blood blister [Recovered/Resolved]
  - Lethargy [Recovered/Resolved]
